FAERS Safety Report 6803076-7 (Version None)
Quarter: 2010Q2

REPORT INFORMATION
  Report Type: 
  Country: None (occurrence: None)
  Receive Date: 20100628
  Receipt Date: 20100618
  Transmission Date: 20101027
  Serious: Yes (Hospitalization)
  Sender: FDA-Public Use
  Company Number: US-PERRIGO-10US010649

PATIENT
  Sex: Female
  Weight: 59.864 kg

DRUGS (5)
  1. DIPHENHYDRAMINE HYDROCHLORIDE 25 MG 431 [Suspect]
     Indication: INSOMNIA
     Dosage: UNK, SINGLE
     Route: 048
     Dates: start: 20100616, end: 20100616
  2. ISENTRESS [Concomitant]
     Indication: ACQUIRED IMMUNODEFICIENCY SYNDROME
     Dosage: UNK, BID
     Route: 048
     Dates: start: 19930601
  3. EPIVIR [Concomitant]
     Indication: ACQUIRED IMMUNODEFICIENCY SYNDROME
     Dosage: UNK, BID
     Route: 048
     Dates: start: 19930601
  4. DAPSONE [Concomitant]
     Indication: ACQUIRED IMMUNODEFICIENCY SYNDROME
     Dosage: UNK, BID
     Route: 048
     Dates: start: 19930601
  5. INTELENCE [Concomitant]
     Indication: ACQUIRED IMMUNODEFICIENCY SYNDROME
     Dosage: UNK, BID
     Route: 048
     Dates: start: 19930601

REACTIONS (8)
  - BLOOD PRESSURE INCREASED [None]
  - CEREBROVASCULAR ACCIDENT [None]
  - DROOLING [None]
  - DRUG INTERACTION [None]
  - DYSPHAGIA [None]
  - PARALYSIS [None]
  - SPEECH DISORDER [None]
  - TONGUE DISORDER [None]
